FAERS Safety Report 9487124 (Version 4)
Quarter: 2013Q4

REPORT INFORMATION
  Report Type: Report from Study
  Country: DE (occurrence: DE)
  Receive Date: 20130829
  Receipt Date: 20131122
  Transmission Date: 20140711
  Serious: Yes (Hospitalization)
  Sender: FDA-Public Use
  Company Number: DE-MPIJNJ-2013JNJ000066

PATIENT
  Sex: 0

DRUGS (4)
  1. VELCADE [Suspect]
     Indication: MANTLE CELL LYMPHOMA
     Dosage: 3.37 MG, UNK
     Route: 065
     Dates: start: 20130730, end: 20130820
  2. RITUXIMAB [Suspect]
     Indication: MANTLE CELL LYMPHOMA
     Dosage: 750 MG, UNK
     Route: 065
     Dates: start: 20130730, end: 20130730
  3. ARA-C [Suspect]
     Indication: MANTLE CELL LYMPHOMA
     Dosage: 4500 MG, UNK
     Route: 065
     Dates: start: 20130731, end: 20130801
  4. DEXAMETHASONE [Suspect]
     Indication: MANTLE CELL LYMPHOMA
     Dosage: 40 MG, UNK
     Route: 065
     Dates: start: 20130730, end: 20130802

REACTIONS (4)
  - Blood electrolytes decreased [Recovered/Resolved]
  - Diarrhoea [Recovered/Resolved]
  - Dehydration [Recovered/Resolved]
  - Pyrexia [Recovered/Resolved]
